FAERS Safety Report 4362675-5 (Version None)
Quarter: 2004Q2

REPORT INFORMATION
  Report Type: 
  Country: None (occurrence: None)
  Receive Date: 20040517
  Receipt Date: 20040507
  Transmission Date: 20050107
  Serious: Yes (Hospitalization)
  Sender: FDA-Public Use
  Company Number: 2004-05-0313

PATIENT
  Age: 71 Year
  Sex: Male

DRUGS (2)
  1. CELESTONE [Suspect]
     Indication: PRURITUS
     Dosage: 1 MG ORAL
     Route: 048
     Dates: start: 20040419, end: 20040426
  2. ATARAX [Concomitant]

REACTIONS (1)
  - INTERSTITIAL LUNG DISEASE [None]
